FAERS Safety Report 8445397 (Version 3)
Quarter: 2013Q1

REPORT INFORMATION
  Report Type: Spontaneous
  Country: DK (occurrence: JP)
  Receive Date: 20120307
  Receipt Date: 20130327
  Transmission Date: 20140127
  Serious: Yes (Hospitalization)
  Sender: FDA-Public Use
  Company Number: JP-FRI-1000028406

PATIENT
  Age: 59 Year
  Sex: Female
  Weight: 39 kg

DRUGS (10)
  1. LEXAPRO [Suspect]
     Indication: DEPRESSION
     Dosage: 10 MG
     Route: 048
     Dates: start: 20111221, end: 20111227
  2. LEXAPRO [Suspect]
     Dosage: 20 MG
     Route: 048
     Dates: start: 20111228, end: 20120124
  3. LEXAPRO [Suspect]
     Indication: DEPRESSION
     Dosage: 10 MG
     Route: 048
     Dates: start: 20120125, end: 20120131
  4. RISPERDAL [Suspect]
     Indication: DELUSION
     Dosage: 1 ML
     Route: 048
     Dates: start: 20111021, end: 20111113
  5. RISPERDAL [Suspect]
     Dosage: 0.5 ML
     Route: 048
     Dates: start: 20111114, end: 20120131
  6. RISPERDAL [Suspect]
     Dosage: 1.5 ML
     Route: 048
     Dates: start: 20111130, end: 20111204
  7. RISPERDAL [Suspect]
     Indication: DELUSION
     Dosage: 2 ML
     Route: 048
     Dates: start: 20111205, end: 20120131
  8. JZOLOFT [Concomitant]
     Indication: DEPRESSION
     Dates: start: 20111114, end: 20111227
  9. MAGMITT [Concomitant]
     Indication: CONSTIPATION
     Dosage: 1980 MG
     Route: 048
     Dates: start: 20111114, end: 20120131
  10. SENNOSIDE [Concomitant]
     Indication: CONSTIPATION
     Dosage: 24 MG
     Route: 048
     Dates: start: 20111121, end: 20120131

REACTIONS (2)
  - Liver disorder [Recovering/Resolving]
  - Condition aggravated [Recovering/Resolving]
